FAERS Safety Report 7272547-4 (Version None)
Quarter: 2011Q1

REPORT INFORMATION
  Report Type: 
  Country: None (occurrence: None)
  Receive Date: 20110203
  Receipt Date: 20110131
  Transmission Date: 20110831
  Serious: Yes (Hospitalization)
  Sender: FDA-Public Use
  Company Number: CO-ROCHE-756652

PATIENT
  Sex: Female

DRUGS (3)
  1. VALGANCICLOVIR [Suspect]
     Indication: LUNG TRANSPLANT
     Route: 048
     Dates: start: 20101006
  2. PREDNISOLONE [Concomitant]
     Route: 048
  3. RANITIDINE [Concomitant]
     Route: 048

REACTIONS (1)
  - PNEUMOTHORAX [None]
